FAERS Safety Report 5372128-3 (Version None)
Quarter: 2007Q2

REPORT INFORMATION
  Report Type: 
  Country: None (occurrence: None)
  Receive Date: 20070615
  Receipt Date: 20070518
  Transmission Date: 20071010
  Serious: No
  Sender: FDA-Public Use
  Company Number: SP01245

PATIENT
  Age: 69 Year
  Sex: Female
  Weight: 108.8633 kg

DRUGS (6)
  1. XIFAXAN [Suspect]
     Indication: COLITIS ULCERATIVE
     Dosage: 600 MG (200 MG, 3 IN 1 D), ORAL
     Route: 048
     Dates: start: 20070515, end: 20070518
  2. ESOMEPRAZOLE MAGNESIUM [Concomitant]
  3. LEVOTHYROXINE SODIUM [Concomitant]
  4. DEXAMETHASONE 0.5MG TAB [Concomitant]
  5. ASPIRIN [Concomitant]
  6. OLMESARTAN MEDOXOMIL [Concomitant]

REACTIONS (1)
  - DIARRHOEA [None]
